FAERS Safety Report 4512221-8 (Version None)
Quarter: 2004Q4

REPORT INFORMATION
  Report Type: 
  Country: None (occurrence: None)
  Receive Date: 20041123
  Receipt Date: 20041117
  Transmission Date: 20050328
  Serious: Yes (Life-Threatening, Hospitalization, Other)
  Sender: FDA-Public Use
  Company Number: 2004094530

PATIENT
  Age: 66 Year
  Sex: Female

DRUGS (5)
  1. AMLODIPINE [Suspect]
     Indication: ILL-DEFINED DISORDER
     Dosage: (1 D), ORAL
     Route: 048
  2. ACEBUTOLOL HCL [Suspect]
     Indication: HYPERTENSION
     Dosage: 400 MG (400 MG, 1 IN 1 D), ORAL
     Route: 048
  3. ROFECOXIB [Suspect]
     Indication: ILL-DEFINED DISORDER
     Dosage: ORAL
     Route: 048
     Dates: start: 20011223, end: 20020101
  4. ALDACTAZINE (ALTIZIDE, SPIRONOLACTONE) [Concomitant]
  5. GLYBURIDE [Concomitant]

REACTIONS (6)
  - ATRIOVENTRICULAR BLOCK COMPLETE [None]
  - DIARRHOEA [None]
  - HYPERKALAEMIA [None]
  - HYPOTHYROIDISM [None]
  - METABOLIC ACIDOSIS [None]
  - SYNCOPE [None]
